FAERS Safety Report 23712923 (Version 1)
Quarter: 2024Q2

REPORT INFORMATION
  Report Type: Report from Study
  Country: US (occurrence: US)
  Receive Date: 20240405
  Receipt Date: 20240405
  Transmission Date: 20240716
  Serious: Yes (Hospitalization, Other)
  Sender: FDA-Public Use
  Company Number: US-ABBVIE-5695010

PATIENT
  Sex: Male

DRUGS (1)
  1. VENCLEXTA [Suspect]
     Active Substance: VENETOCLAX
     Indication: Chloroma
     Dosage: TAKE 1 (50 MG) TABLET WITH 2 (10 MG) TABLET FOR TOTAL OF 70 MG?FORM STRENGTH: 70MG
     Route: 048

REACTIONS (2)
  - Medical procedure [Unknown]
  - Off label use [Unknown]
